FAERS Safety Report 5289259-9 (Version None)
Quarter: 2007Q2

REPORT INFORMATION
  Report Type: 
  Country: None (occurrence: None)
  Receive Date: 20070403
  Receipt Date: 20070403
  Transmission Date: 20071010
  Serious: Yes (Other)
  Sender: FDA-Public Use
  Company Number: None

PATIENT
  Age: 76 Year
  Sex: Male
  Weight: 115.6672 kg

DRUGS (1)
  1. CEFTRIAXONE [Suspect]
     Indication: CELLULITIS
     Dosage: 1GM  QD   IV DRIP
     Route: 041
     Dates: start: 20070330, end: 20070330

REACTIONS (1)
  - ERYTHEMA [None]
